FAERS Safety Report 4311297-0 (Version None)
Quarter: 2004Q1

REPORT INFORMATION
  Report Type: 
  Country: None (occurrence: None)
  Receive Date: 20040304
  Receipt Date: 20040220
  Transmission Date: 20041129
  Serious: Yes (Hospitalization)
  Sender: FDA-Public Use
  Company Number: IT-GLAXOSMITHKLINE-B0324085A

PATIENT
  Age: 66 Year
  Sex: Male

DRUGS (2)
  1. DILATREND [Suspect]
     Indication: HYPERTENSION
     Dosage: 25MG PER DAY
     Route: 048
     Dates: start: 20040115, end: 20040115
  2. FOSICOMBI [Suspect]
     Indication: HYPERTENSION
     Dosage: 32.5MG PER DAY
     Route: 048
     Dates: start: 20040115, end: 20040115

REACTIONS (2)
  - ATRIAL FIBRILLATION [None]
  - HYPOTENSION [None]
